FAERS Safety Report 7383480-1 (Version None)
Quarter: 2011Q1

REPORT INFORMATION
  Report Type: 
  Country: None (occurrence: None)
  Receive Date: 20110330
  Receipt Date: 20110321
  Transmission Date: 20110831
  Serious: Yes (Hospitalization, Other)
  Sender: FDA-Public Use
  Company Number: US-ELI_LILLY_AND_COMPANY-US201103005440

PATIENT
  Age: 85 Year
  Sex: Female

DRUGS (6)
  1. ZYPREXA [Suspect]
     Indication: DEPRESSION
     Dosage: 5 MG, QD
     Dates: start: 20110101, end: 20110307
  2. ZYPREXA [Suspect]
     Dosage: 2.5 MG, QD
     Dates: start: 20110307, end: 20110307
  3. OMEPRAZOLE [Concomitant]
     Dosage: 20 MG, UNK
  4. EFFEXOR [Concomitant]
  5. LISINOPRIL [Concomitant]
  6. WELLBUTRIN [Concomitant]

REACTIONS (13)
  - ASTHENIA [None]
  - DRY MOUTH [None]
  - NAUSEA [None]
  - FEELING JITTERY [None]
  - THROMBOSIS [None]
  - DIVERTICULITIS [None]
  - DECREASED APPETITE [None]
  - CONSTIPATION [None]
  - DRUG EFFECT DECREASED [None]
  - FEELING ABNORMAL [None]
  - SOMNOLENCE [None]
  - OFF LABEL USE [None]
  - BLOOD GLUCOSE INCREASED [None]
